FAERS Safety Report 4334592-8 (Version None)
Quarter: 2004Q1

REPORT INFORMATION
  Report Type: 
  Country: None (occurrence: None)
  Receive Date: 20040329
  Receipt Date: 20031208
  Transmission Date: 20041129
  Serious: No
  Sender: FDA-Public Use
  Company Number: 03P-163-0244268-00

PATIENT
  Age: 72 Year
  Sex: Female
  Weight: 56.6996 kg

DRUGS (6)
  1. HUMIRA [Suspect]
     Indication: RHEUMATOID ARTHRITIS
     Dosage: 40 MG, 1 IN 2 WK, SUBCUTANEOUS
     Route: 058
     Dates: start: 20030901
  2. METHOTREXATE [Concomitant]
  3. DARVOCET [Concomitant]
  4. FOLIC ACID [Concomitant]
  5. LANSOPRAZOLE [Concomitant]
  6. EYE DROPS [Concomitant]

REACTIONS (5)
  - ANAL DISCOMFORT [None]
  - DRY SKIN [None]
  - INJECTION SITE BURNING [None]
  - KERATOCONJUNCTIVITIS SICCA [None]
  - PRURITUS [None]
